FAERS Safety Report 13576796 (Version 1)
Quarter: 2017Q2

REPORT INFORMATION
  Report Type: Spontaneous
  Country: FR (occurrence: FR)
  Receive Date: 20170524
  Receipt Date: 20170524
  Transmission Date: 20170830
  Serious: Yes (Life-Threatening, Hospitalization)
  Sender: FDA-Public Use
  Company Number: FR-TEVA-769638ROM

PATIENT
  Age: 61 Year
  Sex: Male

DRUGS (5)
  1. AMOXICILLINE TEVA 500 MG [Suspect]
     Active Substance: AMOXICILLIN
     Route: 048
     Dates: start: 20170321, end: 20170321
  2. NEBIVOLOL. [Concomitant]
     Active Substance: NEBIVOLOL
     Dosage: 5 MILLIGRAM DAILY; USUAL TREATMENT
  3. VALSARTAN. [Concomitant]
     Active Substance: VALSARTAN
     Dosage: USUAL TREATMENT
  4. CRESTOR [Concomitant]
     Active Substance: ROSUVASTATIN CALCIUM
     Dosage: USUAL TREATMENT
  5. ASPIRINE [Concomitant]
     Active Substance: ASPIRIN
     Dosage: USUAL TREATMENT

REACTIONS (1)
  - Anaphylactic shock [Recovered/Resolved]

NARRATIVE: CASE EVENT DATE: 20170321
